FAERS Safety Report 4660385-8 (Version None)
Quarter: 2005Q2

REPORT INFORMATION
  Report Type: 
  Country: None (occurrence: None)
  Receive Date: 20050512
  Receipt Date: 20050429
  Transmission Date: 20051028
  Serious: Yes (Hospitalization)
  Sender: FDA-Public Use
  Company Number: DE-JNJFOC-20050301470

PATIENT
  Age: 85 Year
  Sex: Female

DRUGS (10)
  1. RISPERDAL [Suspect]
     Route: 049
  2. RISPERDAL [Suspect]
     Indication: DRUG USE FOR UNKNOWN INDICATION
     Route: 049
  3. TREVILOR [Interacting]
     Route: 049
  4. TREVILOR [Interacting]
     Route: 049
  5. TREVILOR [Interacting]
     Indication: DRUG USE FOR UNKNOWN INDICATION
     Route: 049
  6. TAVOR [Concomitant]
     Dosage: 1 - 1.5 MG
     Route: 049
  7. TAVOR [Concomitant]
     Dosage: 1.5 - 2 MG
     Route: 049
  8. TAVOR [Concomitant]
     Route: 049
  9. TAVOR [Concomitant]
     Route: 049
  10. TAVOR [Concomitant]
     Route: 049

REACTIONS (3)
  - DRUG INTERACTION [None]
  - HEPATIC STEATOSIS [None]
  - LIVER FUNCTION TEST ABNORMAL [None]
